FAERS Safety Report 16919962 (Version 8)
Quarter: 2021Q4

REPORT INFORMATION
  Report Type: Other
  Country: AU (occurrence: None)
  Receive Date: 20191015
  Receipt Date: 20211101
  Transmission Date: 20220303
  Serious: Yes (Hospitalization)
  Sender: FDA-Public Use
  Company Number: AU-ROCHE-2434957

PATIENT
  Age: 60 Year
  Sex: Female
  Weight: 76.2 kg

DRUGS (6)
  1. OCREVUS [Suspect]
     Active Substance: OCRELIZUMAB
     Indication: Relapsing-remitting multiple sclerosis
     Route: 041
     Dates: start: 20190403, end: 202104
  2. PREDNISONE [Suspect]
     Active Substance: PREDNISONE
     Indication: Product used for unknown indication
     Route: 065
  3. LEVOTHYROXINE [Concomitant]
     Active Substance: LEVOTHYROXINE
     Indication: Hypothyroidism
     Route: 048
  4. NEXIUM [Concomitant]
     Active Substance: ESOMEPRAZOLE MAGNESIUM
     Route: 048
  5. CANNABIDIOL\HERBALS [Concomitant]
     Active Substance: CANNABIDIOL\HERBALS
     Indication: Multiple sclerosis
     Route: 048
  6. KESIMPTA [Concomitant]
     Active Substance: OFATUMUMAB

REACTIONS (20)
  - Fall [Unknown]
  - Head injury [Unknown]
  - Spinal column injury [Unknown]
  - Intervertebral disc protrusion [Not Recovered/Not Resolved]
  - Soft tissue injury [Unknown]
  - Balance disorder [Not Recovered/Not Resolved]
  - Nausea [Recovered/Resolved]
  - Haemoglobin increased [Not Recovered/Not Resolved]
  - Insomnia [Recovered/Resolved]
  - Palpitations [Recovered/Resolved]
  - Dysphonia [Not Recovered/Not Resolved]
  - Throat irritation [Not Recovered/Not Resolved]
  - Cough [Recovered/Resolved]
  - Laryngeal erythema [Unknown]
  - Fatigue [Not Recovered/Not Resolved]
  - Viral infection [Unknown]
  - Malaise [Unknown]
  - Headache [Unknown]
  - Wheezing [Unknown]
  - Dyspnoea [Recovered/Resolved]

NARRATIVE: CASE EVENT DATE: 20190403
